FAERS Safety Report 13694322 (Version 3)
Quarter: 2017Q3

REPORT INFORMATION
  Report Type: Spontaneous
  Country: TR (occurrence: TR)
  Receive Date: 20170627
  Receipt Date: 20170726
  Transmission Date: 20171127
  Serious: Yes (Other)
  Sender: FDA-Public Use
  Company Number: TR-BAYER-2017-119240

PATIENT
  Age: 43 Year
  Sex: Female
  Weight: 86 kg

DRUGS (2)
  1. BETAFERON [Suspect]
     Active Substance: INTERFERON BETA-1B
     Indication: MULTIPLE SCLEROSIS
     Dosage: 1 ML
     Dates: start: 20170615
  2. BETAFERON [Suspect]
     Active Substance: INTERFERON BETA-1B
     Indication: MULTIPLE SCLEROSIS
     Dosage: 1 ML, QOD

REACTIONS (7)
  - Asthenia [None]
  - Nausea [None]
  - Body temperature decreased [Recovered/Resolved]
  - Body temperature decreased [Recovered/Resolved]
  - Intentional product misuse [None]
  - Headache [None]
  - Drug dose omission [None]

NARRATIVE: CASE EVENT DATE: 20170615
